FAERS Safety Report 5795991-0 (Version None)
Quarter: 2008Q3

REPORT INFORMATION
  Report Type: 
  Country: None (occurrence: None)
  Receive Date: 20080701
  Receipt Date: 20080623
  Transmission Date: 20090109
  Serious: Yes (Other)
  Sender: FDA-Public Use
  Company Number: DE-JNJFOC-20080605915

PATIENT

DRUGS (3)
  1. REMICADE [Suspect]
     Indication: COLITIS ULCERATIVE
     Route: 042
  2. IMMUREK [Concomitant]
     Indication: COLITIS ULCERATIVE
  3. CORTISONE [Concomitant]
     Indication: COLITIS ULCERATIVE

REACTIONS (1)
  - PNEUMONIA LEGIONELLA [None]
